FAERS Safety Report 16439547 (Version 2)
Quarter: 2019Q2

REPORT INFORMATION
  Report Type: Spontaneous
  Country: US (occurrence: US)
  Receive Date: 20190617
  Receipt Date: 20190625
  Transmission Date: 20190711
  Serious: No
  Sender: FDA-Public Use
  Company Number: US-PFIZER INC-2019255564

PATIENT
  Age: 61 Year
  Sex: Male
  Weight: 77.98 kg

DRUGS (1)
  1. CHANTIX [Suspect]
     Active Substance: VARENICLINE TARTRATE
     Indication: SMOKING CESSATION THERAPY
     Dosage: 0.5 MG, 2X/DAY
     Route: 048
     Dates: start: 201905, end: 20190610

REACTIONS (7)
  - Somnolence [Unknown]
  - Apathy [Unknown]
  - Dysgeusia [Unknown]
  - Depression [Unknown]
  - Feeling abnormal [Unknown]
  - Throat tightness [Unknown]
  - Headache [Unknown]
